FAERS Safety Report 10948606 (Version 1)
Quarter: 2015Q1

REPORT INFORMATION
  Report Type: Spontaneous
  Country: GB (occurrence: None)
  Receive Date: 20150320
  Receipt Date: 20150320
  Transmission Date: 20150721
  Serious: Yes (Hospitalization)
  Sender: FDA-Public Use
  Company Number: FK201501277

PATIENT
  Sex: Female

DRUGS (2)
  1. SODIUM CHLORIDE 0.9% [Suspect]
     Active Substance: SODIUM CHLORIDE
     Indication: PREVENTIVE SURGERY
     Dates: start: 20150306
  2. INTRALIPID [Suspect]
     Active Substance: EGG PHOSPHOLIPIDS\GLYCERIN\SOYBEAN OIL
     Indication: PREVENTIVE SURGERY
     Dates: start: 20150306

REACTIONS (9)
  - Pain [None]
  - Product contamination microbial [None]
  - Product sterility lacking [None]
  - Klebsiella infection [None]
  - Product process control issue [None]
  - Hepatic function abnormal [None]
  - Syncope [None]
  - Exposure during pregnancy [None]
  - Influenza like illness [None]

NARRATIVE: CASE EVENT DATE: 20150306
